FAERS Safety Report 25566065 (Version 2)
Quarter: 2025Q4

REPORT INFORMATION
  Report Type: Spontaneous
  Country: GB (occurrence: GB)
  Receive Date: 20250716
  Receipt Date: 20251105
  Transmission Date: 20260118
  Serious: Yes (Other)
  Sender: GRIFOLS
  Company Number: GB-BIOVITRUM-2025-GB-009246

PATIENT
  Age: 19 Month
  Sex: Female

DRUGS (33)
  1. HUMAN IMMUNOGLOBULIN G [Suspect]
     Active Substance: HUMAN IMMUNOGLOBULIN G
     Indication: Haemophagocytic lymphohistiocytosis
     Dosage: UNK, QD
     Route: 042
  2. HUMAN IMMUNOGLOBULIN G [Suspect]
     Active Substance: HUMAN IMMUNOGLOBULIN G
     Indication: Pyrexia
  3. HUMAN IMMUNOGLOBULIN G [Suspect]
     Active Substance: HUMAN IMMUNOGLOBULIN G
     Indication: Cytopenia
  4. KINERET [Suspect]
     Active Substance: ANAKINRA
     Indication: Haemophagocytic lymphohistiocytosis
     Dosage: 10 MILLIGRAM/KILOGRAM
     Route: 058
     Dates: start: 20250516, end: 20250610
  5. ETOPOSIDE [Suspect]
     Active Substance: ETOPOSIDE
     Indication: Haemophagocytic lymphohistiocytosis
     Dosage: 150 MILLIGRAM/SQ. METER
     Route: 042
  6. ETOPOSIDE [Suspect]
     Active Substance: ETOPOSIDE
     Dosage: UNK
     Dates: start: 20250613
  7. ETOPOSIDE [Suspect]
     Active Substance: ETOPOSIDE
     Dosage: UNK
     Dates: start: 20250617
  8. ETOPOSIDE [Suspect]
     Active Substance: ETOPOSIDE
     Dosage: UNK
     Dates: start: 20250629
  9. ETOPOSIDE [Suspect]
     Active Substance: ETOPOSIDE
     Dosage: UNK
     Dates: start: 20250719
  10. ETOPOSIDE [Suspect]
     Active Substance: ETOPOSIDE
     Dosage: UNK
     Dates: start: 20250609
  11. DEXAMETHASONE [Suspect]
     Active Substance: DEXAMETHASONE
     Indication: Haemophagocytic lymphohistiocytosis
     Dosage: 10 MG/M2 TO VARYING DOSES SINCE AROUND 16-MAY-2025
     Dates: start: 20250516
  12. DEXAMETHASONE [Suspect]
     Active Substance: DEXAMETHASONE
     Dosage: 10 MILLIGRAM/SQ. METER, BID
     Route: 048
     Dates: end: 20250525
  13. DEXAMETHASONE [Suspect]
     Active Substance: DEXAMETHASONE
     Dosage: WEANED TO 5MG/M2 DUE TO RAISING ADV
     Dates: start: 20250529, end: 20250619
  14. DEXAMETHASONE [Suspect]
     Active Substance: DEXAMETHASONE
     Dosage: BACK TO 10 MG/M2 DUE TO RETURN OF FEVERS
     Route: 048
     Dates: start: 20250624
  15. DEXAMETHASONE [Suspect]
     Active Substance: DEXAMETHASONE
     Dosage: DOWN TO 5MG/M2 IN VIEW OF RISE IN EBV/ADV
     Route: 048
     Dates: start: 20250630
  16. CYCLOSPORINE [Suspect]
     Active Substance: CYCLOSPORINE
     Indication: Haemophagocytic lymphohistiocytosis
     Dosage: 3 MILLIGRAM/KILOGRAM
     Route: 048
  17. CYCLOSPORINE [Suspect]
     Active Substance: CYCLOSPORINE
     Dosage: 3 MILLIGRAM/KILOGRAM, BID
     Route: 048
  18. GAMIFANT [Suspect]
     Active Substance: EMAPALUMAB-LZSG
     Indication: Haemophagocytic lymphohistiocytosis
     Dosage: 1 MILLIGRAM/KILOGRAM
  19. METHYLPREDNISOLONE [Suspect]
     Active Substance: METHYLPREDNISOLONE
     Indication: Haemophagocytic lymphohistiocytosis
     Dosage: PULSE DOSES
     Dates: start: 20250515
  20. METHYLPREDNISOLONE [Suspect]
     Active Substance: METHYLPREDNISOLONE
     Dosage: PULSE DOSES
     Dates: start: 20250516
  21. METHYLPREDNISOLONE [Suspect]
     Active Substance: METHYLPREDNISOLONE
     Dosage: PULSE DOSES
     Dates: start: 20250517
  22. METHYLPREDNISOLONE [Suspect]
     Active Substance: METHYLPREDNISOLONE
     Dosage: PULSE DOSES
     Dates: start: 20250526
  23. METHYLPREDNISOLONE [Suspect]
     Active Substance: METHYLPREDNISOLONE
     Dosage: PULSE DOSES
     Dates: start: 20250527
  24. METHYLPREDNISOLONE [Suspect]
     Active Substance: METHYLPREDNISOLONE
     Dosage: PULSE DOSES
     Dates: start: 20250528
  25. PREDNISOLONE [Suspect]
     Active Substance: PREDNISOLONE
     Indication: Haemophagocytic lymphohistiocytosis
     Dosage: UNK
     Dates: start: 20250520
  26. PREDNISOLONE [Suspect]
     Active Substance: PREDNISOLONE
     Dosage: UNK
     Dates: start: 20250521
  27. RITUXIMAB [Suspect]
     Active Substance: RITUXIMAB
     Indication: Haemophagocytic lymphohistiocytosis
     Dosage: 4 TIMES
  28. RITUXIMAB [Suspect]
     Active Substance: RITUXIMAB
     Indication: Epstein-Barr virus infection
  29. AMBISOME [Concomitant]
     Active Substance: AMPHOTERICIN B
     Indication: Pyrexia
     Dosage: 1 MILLIGRAM/KILOGRAM, QD
  30. AMBISOME [Concomitant]
     Active Substance: AMPHOTERICIN B
     Indication: Fungal infection
     Dosage: 3 MILLIGRAM/KILOGRAM, QD
  31. MEROPENEM [Concomitant]
     Active Substance: MEROPENEM
     Indication: Pyrexia
  32. MEROPENEM [Concomitant]
     Active Substance: MEROPENEM
     Indication: Lymphopenia
  33. MEROPENEM [Concomitant]
     Active Substance: MEROPENEM
     Indication: Haemophagocytic lymphohistiocytosis

REACTIONS (4)
  - Adenovirus infection [Unknown]
  - Epstein-Barr virus infection [Recovering/Resolving]
  - Haemophagocytic lymphohistiocytosis [Recovering/Resolving]
  - Condition aggravated [Recovering/Resolving]

NARRATIVE: CASE EVENT DATE: 20250610
